FAERS Safety Report 5141952-4 (Version None)
Quarter: 2006Q4

REPORT INFORMATION
  Report Type: 
  Country: None (occurrence: None)
  Receive Date: 20061102
  Receipt Date: 20060921
  Transmission Date: 20070319
  Serious: Yes (Disabling)
  Sender: FDA-Public Use
  Company Number: PHBS2006JP14799

PATIENT
  Sex: Female

DRUGS (5)
  1. DECADRON [Concomitant]
  2. BACTRIM [Concomitant]
  3. IRON [Concomitant]
  4. PROTON PUMP INHIBITORS [Concomitant]
  5. NEORAL [Suspect]
     Indication: INTERSTITIAL LUNG DISEASE
     Dosage: 50 MG/D
     Route: 048
     Dates: start: 20060911, end: 20060921

REACTIONS (3)
  - CONDITION AGGRAVATED [None]
  - HEARING IMPAIRED [None]
  - HYPOACUSIS [None]
